FAERS Safety Report 22324977 (Version 1)
Quarter: 2023Q2

REPORT INFORMATION
  Report Type: Spontaneous
  Country: FR (occurrence: FR)
  Receive Date: 20230516
  Receipt Date: 20230516
  Transmission Date: 20230722
  Serious: Yes (Hospitalization)
  Sender: FDA-Public Use
  Company Number: FR-002147023-NVSC2023FR103964

PATIENT

DRUGS (1)
  1. RUXOLITINIB [Suspect]
     Active Substance: RUXOLITINIB
     Indication: Polycythaemia vera
     Dosage: UNK
     Route: 065
     Dates: start: 201610, end: 20220526

REACTIONS (9)
  - Arrhythmia [Unknown]
  - Epilepsy [Unknown]
  - Meningitis [Unknown]
  - Obstruction [Unknown]
  - Pneumonitis [Unknown]
  - Cerebrovascular accident [Unknown]
  - Diarrhoea [Unknown]
  - Dysphagia [Unknown]
  - Urinary tract infection [Unknown]

NARRATIVE: CASE EVENT DATE: 20220728
